FAERS Safety Report 4402256-8 (Version None)
Quarter: 2004Q3

REPORT INFORMATION
  Report Type: 
  Country: None (occurrence: None)
  Receive Date: 20040715
  Receipt Date: 20040706
  Transmission Date: 20050211
  Serious: Yes (Hospitalization)
  Sender: FDA-Public Use
  Company Number: WAES 0407PHL00003

PATIENT
  Age: 49 Year
  Sex: Male

DRUGS (2)
  1. COZAAR [Suspect]
     Indication: CARDIAC FAILURE CONGESTIVE
     Dosage: PO
     Route: 048
     Dates: start: 20021024, end: 20040625
  2. COZAAR [Suspect]
     Indication: CARDIAC FAILURE CONGESTIVE
     Dosage: PO
     Route: 048
     Dates: start: 20040701

REACTIONS (1)
  - PNEUMONIA [None]
